FAERS Safety Report 6822710-9 (Version None)
Quarter: 2010Q3

REPORT INFORMATION
  Report Type: 
  Country: None (occurrence: None)
  Receive Date: 20100708
  Receipt Date: 20100628
  Transmission Date: 20110219
  Serious: Yes (Hospitalization)
  Sender: FDA-Public Use
  Company Number: FR-PFIZER INC-2010077452

PATIENT
  Age: 73 Year
  Sex: Female

DRUGS (17)
  1. NEURONTIN [Suspect]
     Dosage: UNK
     Route: 048
     Dates: start: 20100419, end: 20100419
  2. NEURONTIN [Suspect]
     Dosage: UNK
     Dates: start: 20100420, end: 20100420
  3. PROPOFOL [Suspect]
     Dosage: UNK
     Route: 042
     Dates: start: 20100420, end: 20100420
  4. ATRACURIUM [Suspect]
     Dosage: UNK
     Route: 042
     Dates: start: 20100420, end: 20100420
  5. ULTIVA [Suspect]
     Dosage: UNK
     Route: 042
     Dates: start: 20100420, end: 20100420
  6. NORMACOL [Suspect]
     Dosage: UNK
     Route: 054
     Dates: start: 20100419, end: 20100419
  7. BETADINE [Suspect]
     Dosage: UNK
     Route: 003
     Dates: start: 20100419, end: 20100420
  8. BETADINE GYNECOLOGICAL [Suspect]
     Dosage: UNK
     Route: 067
     Dates: start: 20100420, end: 20100420
  9. AUGMENTIN '125' [Suspect]
     Dosage: 2G+1G
     Route: 042
     Dates: start: 20100420, end: 20100420
  10. KETAMINE HCL [Suspect]
     Dosage: UNK
     Route: 042
     Dates: start: 20100420, end: 20100420
  11. ROPIVACAINE [Suspect]
     Dosage: UNK
     Route: 027
     Dates: start: 20100420, end: 20100420
  12. LOVENOX [Suspect]
     Dosage: 0.4 ML, UNK
     Route: 058
     Dates: start: 20100419, end: 20100420
  13. CALCIUM CHLORIDE [Suspect]
     Dosage: UNK
     Route: 042
     Dates: start: 20100420, end: 20100420
  14. GENTAMICIN [Suspect]
     Dosage: 240 MG, 1X/DAY
     Route: 042
     Dates: start: 20100420, end: 20100420
  15. COTAREG [Concomitant]
  16. LEVOTHYROXINE SODIUM [Concomitant]
  17. TIMOLOL [Concomitant]

REACTIONS (4)
  - HAEMATURIA [None]
  - LYMPHOPENIA [None]
  - OLIGURIA [None]
  - RENAL FAILURE ACUTE [None]
